FAERS Safety Report 12214372 (Version 1)
Quarter: 2016Q1

REPORT INFORMATION
  Report Type: Spontaneous
  Country: US (occurrence: US)
  Receive Date: 20160328
  Receipt Date: 20160328
  Transmission Date: 20160526
  Serious: No
  Sender: FDA-Public Use
  Company Number: US-WARNER CHILCOTT, LLC-1049787

PATIENT
  Age: 57 Year
  Sex: Female
  Weight: 44.09 kg

DRUGS (4)
  1. VITAMINS [Concomitant]
     Active Substance: VITAMINS
  2. ESTRACE [Suspect]
     Active Substance: ESTRADIOL
     Route: 067
     Dates: start: 20151230, end: 201601
  3. ESTRACE [Suspect]
     Active Substance: ESTRADIOL
     Route: 066
     Dates: start: 2013, end: 20151230
  4. ESTRACE [Suspect]
     Active Substance: ESTRADIOL
     Route: 067
     Dates: start: 20160113

REACTIONS (7)
  - Abdominal distension [Recovered/Resolved]
  - Malaise [Recovered/Resolved]
  - Drug prescribing error [None]
  - Drug administration error [None]
  - Osteoporosis [Unknown]
  - Fatigue [Recovered/Resolved]
  - Breast tenderness [Recovered/Resolved]
